FAERS Safety Report 20952857 (Version 1)
Quarter: 2022Q2

REPORT INFORMATION
  Report Type: Spontaneous
  Country: CH (occurrence: CH)
  Receive Date: 20220613
  Receipt Date: 20220613
  Transmission Date: 20220721
  Serious: Yes (Other)
  Sender: FDA-Public Use
  Company Number: None

PATIENT
  Age: 38 Year
  Sex: Female

DRUGS (2)
  1. FOSAPREPITANT DIMEGLUMINE [Suspect]
     Active Substance: FOSAPREPITANT DIMEGLUMINE
     Indication: Prophylaxis of nausea and vomiting
     Dosage: IN TOTAL
     Route: 041
     Dates: start: 202204, end: 202204
  2. TAXOL [Suspect]
     Active Substance: PACLITAXEL
     Dosage: CYCLICAL
     Route: 042
     Dates: start: 202204

REACTIONS (3)
  - Angioedema [Recovered/Resolved]
  - Erythema [Unknown]
  - Liver function test abnormal [Unknown]

NARRATIVE: CASE EVENT DATE: 20220401
